FAERS Safety Report 25147424 (Version 2)
Quarter: 2025Q2

REPORT INFORMATION
  Report Type: Report from Study
  Country: US (occurrence: US)
  Receive Date: 20250401
  Receipt Date: 20250416
  Transmission Date: 20250716
  Serious: Yes (Other)
  Sender: ABBVIE
  Company Number: US-ABBVIE-6200460

PATIENT
  Sex: Female

DRUGS (1)
  1. CREON [Suspect]
     Active Substance: PANCRELIPASE AMYLASE\PANCRELIPASE LIPASE\PANCRELIPASE PROTEASE
     Indication: Product used for unknown indication
     Route: 048

REACTIONS (13)
  - Pancreas infection [Unknown]
  - Denture wearer [Unknown]
  - Diabetes mellitus [Unknown]
  - Psychomotor hyperactivity [Unknown]
  - Gastrointestinal disorder [Unknown]
  - Fatigue [Unknown]
  - Neuropathy peripheral [Unknown]
  - Pancreatitis [Unknown]
  - Cyst [Unknown]
  - Ulcer haemorrhage [Unknown]
  - Pancreatolithiasis [Unknown]
  - Nerve injury [Unknown]
  - Hypoaesthesia [Unknown]
